FAERS Safety Report 8006853-2 (Version None)
Quarter: 2011Q4

REPORT INFORMATION
  Report Type: 
  Country: None (occurrence: None)
  Receive Date: 20111227
  Receipt Date: 20111219
  Transmission Date: 20120403
  Serious: Yes (Disabling)
  Sender: FDA-Public Use
  Company Number: IT-JNJFOC-20111208284

PATIENT
  Sex: Male

DRUGS (1)
  1. LEVOFLOXACIN [Suspect]
     Indication: THROAT IRRITATION
     Route: 048
     Dates: start: 20110816, end: 20110830

REACTIONS (4)
  - ANXIETY [None]
  - NERVOUS SYSTEM DISORDER [None]
  - FORMICATION [None]
  - TOXIC NEUROPATHY [None]
